FAERS Safety Report 4677859-6 (Version None)
Quarter: 2005Q2

REPORT INFORMATION
  Report Type: 
  Country: None (occurrence: None)
  Receive Date: 20050527
  Receipt Date: 20050519
  Transmission Date: 20051028
  Serious: Yes (Hospitalization, Other)
  Sender: FDA-Public Use
  Company Number: US-2005-008336

PATIENT
  Age: 48 Year
  Sex: Female

DRUGS (3)
  1. MIRENA [Suspect]
     Indication: CONTRACEPTION
     Dosage: 20 ?G/DAY, CONT, INTRA-UTERINE
     Route: 015
     Dates: start: 20020701
  2. SYNTHROID [Concomitant]
  3. DEPAKOTE [Concomitant]

REACTIONS (5)
  - ANAEMIA [None]
  - HYPOMENORRHOEA [None]
  - IUCD COMPLICATION [None]
  - MENORRHAGIA [None]
  - UTERINE LEIOMYOMA [None]
